FAERS Safety Report 16084696 (Version 1)
Quarter: 2019Q1

REPORT INFORMATION
  Report Type: Spontaneous
  Country: IT (occurrence: IT)
  Receive Date: 20190318
  Receipt Date: 20190318
  Transmission Date: 20190418
  Serious: Yes (Hospitalization)
  Sender: FDA-Public Use
  Company Number: IT-ELI_LILLY_AND_COMPANY-IT201903003362

PATIENT
  Age: 69 Year
  Sex: Male

DRUGS (12)
  1. ENSURE [NUTRIENTS NOS] [Concomitant]
  2. KANRENOL [Concomitant]
     Active Substance: CANRENOATE POTASSIUM
  3. SOLDESAM [Concomitant]
     Active Substance: DEXAMETHASONE
  4. TORVAST [Concomitant]
     Active Substance: ATORVASTATIN
  5. PARACODINA [DIHYDROCODEINE BITARTRATE] [Concomitant]
  6. PANTORC [Concomitant]
     Active Substance: PANTOPRAZOLE SODIUM
  7. HUMALOG [Suspect]
     Active Substance: INSULIN LISPRO
     Indication: PRODUCT USED FOR UNKNOWN INDICATION
     Route: 058
     Dates: start: 20170101, end: 20180227
  8. CLENIL [BECLOMETASONE DIPROPIONATE] [Concomitant]
  9. ACETYLSALICYLIC ACID [Concomitant]
     Active Substance: ASPIRIN
  10. ARIXTRA [Concomitant]
     Active Substance: FONDAPARINUX SODIUM
  11. CARDICOR [Concomitant]
     Active Substance: BISOPROLOL
  12. LASIX [Concomitant]
     Active Substance: FUROSEMIDE

REACTIONS (2)
  - Presyncope [Unknown]
  - Hypoglycaemia [Unknown]

NARRATIVE: CASE EVENT DATE: 20180227
